FAERS Safety Report 9058129 (Version 2)
Quarter: 2013Q2

REPORT INFORMATION
  Report Type: Spontaneous
  Country: US (occurrence: US)
  Receive Date: 20130211
  Receipt Date: 20130625
  Transmission Date: 20140414
  Serious: No
  Sender: FDA-Public Use
  Company Number: US-BIOGENIDEC-2013BI010514

PATIENT
  Age: 43 Year
  Sex: Female

DRUGS (1)
  1. TYSABRI [Suspect]
     Indication: MULTIPLE SCLEROSIS
     Route: 042
     Dates: start: 20120213

REACTIONS (6)
  - Memory impairment [Not Recovered/Not Resolved]
  - Fear [Unknown]
  - Depression [Unknown]
  - Depressed mood [Unknown]
  - Dysarthria [Recovered/Resolved with Sequelae]
  - Fatigue [Recovered/Resolved with Sequelae]
